FAERS Safety Report 13385289 (Version 2)
Quarter: 2017Q2

REPORT INFORMATION
  Report Type: Report from Study
  Country: MX (occurrence: MX)
  Receive Date: 20170329
  Receipt Date: 20170608
  Transmission Date: 20170830
  Serious: Yes (Death)
  Sender: FDA-Public Use
  Company Number: PHHY2017MX047796

PATIENT
  Age: 86 Year
  Sex: Male

DRUGS (3)
  1. ASPIRIN PROTECT [Concomitant]
     Active Substance: ASPIRIN
     Indication: PRODUCT USED FOR UNKNOWN INDICATION
     Route: 065
  2. DIOVAN [Suspect]
     Active Substance: VALSARTAN
     Indication: HYPERTENSION
     Dosage: 1 DF, QD
     Route: 065
  3. CO-DIOVAN [Suspect]
     Active Substance: HYDROCHLOROTHIAZIDE\VALSARTAN
     Indication: BLOOD PRESSURE INCREASED
     Dosage: 1 DF (HYDROCHLOROTHIAZIDE 12.5 MG/VALSARTAN 160 MG), QD
     Route: 065
     Dates: end: 201511

REACTIONS (1)
  - Death [Fatal]

NARRATIVE: CASE EVENT DATE: 201511
